FAERS Safety Report 6426154-3 (Version None)
Quarter: 2009Q4

REPORT INFORMATION
  Report Type: 
  Country: None (occurrence: None)
  Receive Date: 20091104
  Receipt Date: 20091022
  Transmission Date: 20100525
  Serious: Yes (Hospitalization)
  Sender: FDA-Public Use
  Company Number: US-ELI_LILLY_AND_COMPANY-US200909004899

PATIENT
  Sex: Female

DRUGS (8)
  1. FORTEO [Suspect]
     Indication: OSTEOPOROSIS
     Dosage: UNK, UNK
     Dates: start: 20090101, end: 20090922
  2. FORTEO [Suspect]
     Dates: start: 20091021
  3. VITAMIN D [Concomitant]
  4. LANTUS [Concomitant]
  5. INSULIN [Concomitant]
  6. NOVOLOG [Concomitant]
  7. PREDNISONE TAB [Concomitant]
     Dosage: 5 MG, UNK
  8. PLAQUENIL [Concomitant]
     Dosage: 400 MG, UNK

REACTIONS (1)
  - DIABETES MELLITUS INADEQUATE CONTROL [None]
